FAERS Safety Report 18800623 (Version 1)
Quarter: 2021Q1

REPORT INFORMATION
  Report Type: Report from Study
  Country: US (occurrence: US)
  Receive Date: 20210128
  Receipt Date: 20210128
  Transmission Date: 20210419
  Serious: Yes (Hospitalization)
  Sender: FDA-Public Use
  Company Number: US-GILEAD-2021-0513845

PATIENT
  Age: 10 Year
  Sex: Male

DRUGS (7)
  1. AQUADEKS PEDIATRIC LIQUID [Concomitant]
     Active Substance: MINERALS\VITAMINS
  2. PULMOZYME [Concomitant]
     Active Substance: DORNASE ALFA
  3. AZTREONAM LYSINE [Suspect]
     Active Substance: AZTREONAM LYSINE
     Indication: CYSTIC FIBROSIS
     Dosage: 75 MG, TID, 28 DAYS ON, 28 DAYS OFF
     Route: 055
     Dates: start: 20190406
  4. CREON [Concomitant]
     Active Substance: PANCRELIPASE AMYLASE\PANCRELIPASE LIPASE\PANCRELIPASE PROTEASE
  5. FEROSUL [Concomitant]
     Active Substance: FERROUS SULFATE
  6. ALBUTEROL [SALBUTAMOL] [Concomitant]
     Active Substance: ALBUTEROL
  7. TRIKAFTA [Concomitant]
     Active Substance: ELEXACAFTOR\IVACAFTOR\TEZACAFTOR

REACTIONS (1)
  - Infection [Unknown]

NARRATIVE: CASE EVENT DATE: 20210101
